FAERS Safety Report 5839296-8 (Version None)
Quarter: 2008Q3

REPORT INFORMATION
  Report Type: 
  Country: None (occurrence: None)
  Receive Date: 20080808
  Receipt Date: 20080729
  Transmission Date: 20090109
  Serious: Yes (Hospitalization)
  Sender: FDA-Public Use
  Company Number: IT-PFIZER INC-2008063924

PATIENT
  Sex: Female

DRUGS (3)
  1. SUTENT [Suspect]
     Dates: start: 20080401, end: 20080708
  2. LEVOTHYROXINE SODIUM [Concomitant]
  3. NEBIVOLOL HCL [Concomitant]

REACTIONS (1)
  - PERICARDITIS [None]
